FAERS Safety Report 16279000 (Version 3)
Quarter: 2019Q3

REPORT INFORMATION
  Report Type: Spontaneous
  Country: US (occurrence: US)
  Receive Date: 20190506
  Receipt Date: 20190809
  Transmission Date: 20191004
  Serious: Yes (Death, Hospitalization)
  Sender: FDA-Public Use
  Company Number: US-ALLERGAN-1918373US

PATIENT
  Sex: Female

DRUGS (5)
  1. LINZESS [Suspect]
     Active Substance: LINACLOTIDE
     Dosage: 72 ?G, QD
     Route: 048
  2. MULTIPLE UNSPECIFIED PAIN MEDICATIONS [Concomitant]
     Indication: PAIN
  3. LINZESS [Suspect]
     Active Substance: LINACLOTIDE
     Indication: PRODUCT USED FOR UNKNOWN INDICATION
     Dosage: 290 ?G, BID
     Route: 048
     Dates: end: 201904
  4. LINZESS [Suspect]
     Active Substance: LINACLOTIDE
     Dosage: 72 ?G, BID
     Route: 048
  5. LINZESS [Suspect]
     Active Substance: LINACLOTIDE
     Dosage: 290 ?G, QD
     Route: 048

REACTIONS (12)
  - Pain [Unknown]
  - Wrong dose [Unknown]
  - Dehydration [Fatal]
  - Vomiting [Fatal]
  - Drug ineffective [Unknown]
  - Diarrhoea [Fatal]
  - Malaise [Not Recovered/Not Resolved]
  - Intentional product use issue [Unknown]
  - Renal failure [Fatal]
  - Accidental overdose [Unknown]
  - Product dispensing error [Unknown]
  - Nausea [Fatal]

NARRATIVE: CASE EVENT DATE: 201904
